FAERS Safety Report 14119954 (Version 2)
Quarter: 2017Q4

REPORT INFORMATION
  Report Type: Report from Study
  Country: CA (occurrence: CA)
  Receive Date: 20171024
  Receipt Date: 20171031
  Transmission Date: 20180321
  Serious: Yes (Hospitalization, Other)
  Sender: FDA-Public Use
  Company Number: CA-ASTRAZENECA-2017SE99139

PATIENT
  Age: 19519 Day
  Sex: Female

DRUGS (10)
  1. HYDROCORTISONE. [Concomitant]
     Active Substance: HYDROCORTISONE
     Dosage: APPLIED THREE TIME A DAILY PERINEAL
  2. ZOFRAN [Concomitant]
     Active Substance: ONDANSETRON HYDROCHLORIDE
  3. MULTIVITAMIN [Concomitant]
     Active Substance: VITAMINS
  4. VITAMIN B12 [Concomitant]
     Active Substance: CYANOCOBALAMIN
  5. HYDROMORPHONE [Concomitant]
     Active Substance: HYDROMORPHONE
     Indication: PAIN
     Dosage: 1.0MG AS REQUIRED
     Route: 048
  6. LYNPARZA [Suspect]
     Active Substance: OLAPARIB
     Indication: OVARIAN CANCER METASTATIC
     Route: 048
  7. LYNPARZA [Suspect]
     Active Substance: OLAPARIB
     Indication: OVARIAN CANCER METASTATIC
     Route: 048
     Dates: end: 20170901
  8. HYDROMORPHONE [Concomitant]
     Active Substance: HYDROMORPHONE
     Indication: PAIN
     Route: 048
  9. VANCOMYCIN [Concomitant]
     Active Substance: VANCOMYCIN
  10. PANTOLOC [Concomitant]
     Active Substance: PANTOPRAZOLE SODIUM
     Dosage: 40.0MG UNKNOWN
     Route: 048

REACTIONS (9)
  - Abdominal distension [Recovering/Resolving]
  - Dehydration [Unknown]
  - Urine ketone body present [Unknown]
  - Vomiting [Recovering/Resolving]
  - White blood cell count increased [Unknown]
  - Malaise [Recovering/Resolving]
  - Nausea [Recovering/Resolving]
  - Malignant neoplasm progression [Unknown]
  - Clostridium difficile colitis [Unknown]

NARRATIVE: CASE EVENT DATE: 20170912
